FAERS Safety Report 15157076 (Version 1)
Quarter: 2018Q3

REPORT INFORMATION
  Report Type: Spontaneous
  Country: FR (occurrence: FR)
  Receive Date: 20180718
  Receipt Date: 20180718
  Transmission Date: 20181010
  Serious: Yes (Other)
  Sender: FDA-Public Use
  Company Number: FR-AUROBINDO-AUR-APL-2018-036116

PATIENT
  Age: 84 Year
  Sex: Female

DRUGS (2)
  1. CAPECITABINE FILM COATED TABLET [Suspect]
     Active Substance: CAPECITABINE
     Indication: COLON NEOPLASM
     Dosage: 7 DOSAGE FORM, ONCE A DAY (7 DF, QD (ON DAY 1, DAY 14, DAY 21 FOR 8 CHEMOTHERAPY CYCLES))
     Route: 065
  2. CAPECITABINE FILM COATED TABLET [Suspect]
     Active Substance: CAPECITABINE
     Dosage: 1 PER CYCLE
     Route: 065

REACTIONS (4)
  - Erythema [Unknown]
  - Dermatitis bullous [Unknown]
  - Palmar-plantar erythrodysaesthesia syndrome [Unknown]
  - Eczema [Unknown]
